FAERS Safety Report 11693652 (Version 2)
Quarter: 2015Q4

REPORT INFORMATION
  Report Type: Spontaneous
  Country: US (occurrence: US)
  Receive Date: 20151103
  Receipt Date: 20151119
  Transmission Date: 20160304
  Serious: Yes (Other)
  Sender: FDA-Public Use
  Company Number: PHEH2015US022189

PATIENT
  Age: 66 Year
  Sex: Male
  Weight: 107.5 kg

DRUGS (4)
  1. VOTRIENT [Suspect]
     Active Substance: PAZOPANIB HYDROCHLORIDE
     Indication: RENAL CANCER
     Dosage: 400 MG, QD
     Route: 048
     Dates: start: 20151003, end: 20151009
  2. VOTRIENT [Suspect]
     Active Substance: PAZOPANIB HYDROCHLORIDE
     Dosage: 800 MG, QD
     Route: 048
     Dates: start: 20151017, end: 20151104
  3. VOTRIENT [Suspect]
     Active Substance: PAZOPANIB HYDROCHLORIDE
     Dosage: 600 MG, QD
     Route: 048
     Dates: start: 20151105
  4. VOTRIENT [Suspect]
     Active Substance: PAZOPANIB HYDROCHLORIDE
     Dosage: 600 MG, QD
     Route: 048
     Dates: start: 20151010, end: 20151016

REACTIONS (3)
  - Liver function test abnormal [Recovering/Resolving]
  - Hypothyroidism [Unknown]
  - Blood thyroid stimulating hormone increased [Recovering/Resolving]

NARRATIVE: CASE EVENT DATE: 20151021
